FAERS Safety Report 17636659 (Version 6)
Quarter: 2021Q4

REPORT INFORMATION
  Report Type: Spontaneous
  Country: US (occurrence: US)
  Receive Date: 20200407
  Receipt Date: 20211206
  Transmission Date: 20220303
  Serious: Yes (Other)
  Sender: FDA-Public Use
  Company Number: US-PFIZER INC-2020139511

PATIENT
  Age: 79 Year
  Sex: Female

DRUGS (1)
  1. PREMARIN [Suspect]
     Active Substance: ESTROGENS, CONJUGATED
     Indication: Uterine irritability
     Dosage: 1 G, 1X/DAY (1/2 APPLICATOR FULL, (QHS) AT BED TIME)
     Route: 067

REACTIONS (4)
  - Urinary tract infection [Unknown]
  - Bladder disorder [Unknown]
  - Hypoacusis [Unknown]
  - Off label use [Unknown]
